FAERS Safety Report 8064596-3 (Version None)
Quarter: 2012Q1

REPORT INFORMATION
  Report Type: 
  Country: None (occurrence: None)
  Receive Date: 20120123
  Receipt Date: 20120117
  Transmission Date: 20120608
  Serious: Yes (Other)
  Sender: FDA-Public Use
  Company Number: GB-MERCK-1201GBR00006

PATIENT
  Age: 47 Year
  Sex: Male

DRUGS (5)
  1. COZAAR [Suspect]
     Indication: HYPERTENSION
     Route: 048
  2. ZOCOR [Concomitant]
     Route: 048
  3. METFORMIN [Concomitant]
     Route: 065
  4. INSULIN ASPART [Concomitant]
     Route: 065
  5. INSULIN DETEMIR [Concomitant]
     Route: 065

REACTIONS (3)
  - DERMATITIS ALLERGIC [None]
  - RASH ERYTHEMATOUS [None]
  - PRODUCT SUBSTITUTION ISSUE [None]
